FAERS Safety Report 6803092-5 (Version None)
Quarter: 2010Q2

REPORT INFORMATION
  Report Type: 
  Country: None (occurrence: None)
  Receive Date: 20100628
  Receipt Date: 20100617
  Transmission Date: 20101027
  Serious: Yes (Hospitalization)
  Sender: FDA-Public Use
  Company Number: JP-JNJFOC-20100300174

PATIENT
  Sex: Male
  Weight: 49 kg

DRUGS (15)
  1. REMICADE [Suspect]
     Indication: CROHN'S DISEASE
     Dosage: 36 INFUSIONS
     Route: 042
  2. REMICADE [Suspect]
     Route: 042
  3. PREDONINE [Suspect]
     Indication: PROPHYLAXIS
     Route: 048
  4. SOLU-MEDROL [Concomitant]
     Indication: PROPHYLAXIS
     Route: 042
  5. POLARAMINE [Concomitant]
     Indication: PROPHYLAXIS
     Route: 042
  6. ASPARA K [Concomitant]
     Indication: HYPOKALAEMIA
     Route: 048
  7. LEUKERIN [Concomitant]
     Indication: CROHN'S DISEASE
     Route: 048
  8. GASTER D [Concomitant]
     Indication: CROHN'S DISEASE
     Route: 048
  9. TRIAZOLAM [Concomitant]
     Indication: INSOMNIA
     Route: 048
  10. TALION [Concomitant]
     Indication: PROPHYLAXIS
     Route: 048
  11. RIZE [Concomitant]
     Indication: PSYCHOSOMATIC DISEASE
     Route: 048
  12. CALCIUM ASPARTATE [Concomitant]
     Indication: HYPOCALCAEMIA
     Route: 048
  13. URSO 250 [Concomitant]
     Indication: CHOLELITHIASIS
     Route: 048
  14. BETAHISTINE MESILATE [Concomitant]
     Indication: DIZZINESS
     Route: 048
  15. CYANOCOBALAMIN [Concomitant]
     Indication: VITAMIN B COMPLEX DEFICIENCY
     Route: 048

REACTIONS (2)
  - BLOOD CREATINE PHOSPHOKINASE INCREASED [None]
  - HYPOKALAEMIA [None]
